FAERS Safety Report 14096858 (Version 3)
Quarter: 2018Q3

REPORT INFORMATION
  Report Type: Spontaneous
  Country: US (occurrence: US)
  Receive Date: 20171016
  Receipt Date: 20180824
  Transmission Date: 20181010
  Serious: Yes (Hospitalization, Other)
  Sender: FDA-Public Use
  Company Number: US-DSJP-DSU-2017-139316

PATIENT

DRUGS (2)
  1. BENICAR HCT [Suspect]
     Active Substance: HYDROCHLOROTHIAZIDE\OLMESARTAN MEDOXOMIL
     Dosage: 40?12.5 MG, QD
     Route: 048
     Dates: start: 20080108
  2. BENICAR HCT [Suspect]
     Active Substance: HYDROCHLOROTHIAZIDE\OLMESARTAN MEDOXOMIL
     Indication: PRODUCT USED FOR UNKNOWN INDICATION
     Dosage: 40/12.5 MG HALF  TABLET, QD
     Route: 048
     Dates: start: 20080108, end: 20161231

REACTIONS (13)
  - Ulcer [Unknown]
  - Hiatus hernia [Not Recovered/Not Resolved]
  - Gastrooesophageal reflux disease [Unknown]
  - Gastrooesophageal sphincter insufficiency [Unknown]
  - Drug administration error [Unknown]
  - Sprue-like enteropathy [Recovering/Resolving]
  - Renal failure [Unknown]
  - Diverticulum intestinal [Unknown]
  - Cholecystitis [Recovered/Resolved]
  - Gastrointestinal bacterial overgrowth [Unknown]
  - Oesophageal stenosis [Unknown]
  - Polyp [Unknown]
  - Liver function test increased [Unknown]

NARRATIVE: CASE EVENT DATE: 201301
